FAERS Safety Report 25999293 (Version 2)
Quarter: 2025Q4

REPORT INFORMATION
  Report Type: Report from Study
  Country: RU (occurrence: RU)
  Receive Date: 20251105
  Receipt Date: 20251113
  Transmission Date: 20260118
  Serious: Yes (Death, Other)
  Sender: ROCHE
  Company Number: RU-ROCHE-10000424145

PATIENT

DRUGS (3)
  1. COLUMVI [Suspect]
     Active Substance: GLOFITAMAB-GXBM
     Indication: Product used for unknown indication
     Route: 065
  2. COLUMVI [Suspect]
     Active Substance: GLOFITAMAB-GXBM
     Route: 065
  3. COLUMVI [Suspect]
     Active Substance: GLOFITAMAB-GXBM
     Route: 065

REACTIONS (9)
  - Disease progression [Unknown]
  - Anaemia [Unknown]
  - Pyrexia [Unknown]
  - Viral infection [Unknown]
  - COVID-19 [Unknown]
  - Fungal infection [Unknown]
  - Cytokine release syndrome [Unknown]
  - Tumour flare [Unknown]
  - Death [Fatal]
